FAERS Safety Report 23117402 (Version 3)
Quarter: 2024Q1

REPORT INFORMATION
  Report Type: Spontaneous
  Country: ES (occurrence: ES)
  Receive Date: 20231027
  Receipt Date: 20240105
  Transmission Date: 20240410
  Serious: Yes (Other)
  Sender: FDA-Public Use
  Company Number: ES-BIOGEN-2023BI01233193

PATIENT
  Age: 49 Year
  Sex: Female

DRUGS (1)
  1. TYSABRI [Suspect]
     Active Substance: NATALIZUMAB
     Indication: Multiple sclerosis
     Route: 050
     Dates: start: 202012, end: 202308

REACTIONS (1)
  - Invasive ductal breast carcinoma [Unknown]

NARRATIVE: CASE EVENT DATE: 20230101
